FAERS Safety Report 15145180 (Version 3)
Quarter: 2019Q2

REPORT INFORMATION
  Report Type: Spontaneous
  Country: US (occurrence: US)
  Receive Date: 20180713
  Receipt Date: 20190606
  Transmission Date: 20190711
  Serious: No
  Sender: FDA-Public Use
  Company Number: US-INTERCEPT-PMOCA2018000433

PATIENT
  Age: 70 Year
  Sex: Female

DRUGS (1)
  1. OCALIVA [Suspect]
     Active Substance: OBETICHOLIC ACID
     Indication: PRIMARY BILIARY CHOLANGITIS
     Dosage: 5 MG, QD
     Route: 048
     Dates: start: 201706

REACTIONS (11)
  - Constipation [Not Recovered/Not Resolved]
  - Abdominal distension [Unknown]
  - Hiccups [Not Recovered/Not Resolved]
  - Product dose omission [Unknown]
  - Gastrooesophageal reflux disease [Not Recovered/Not Resolved]
  - Hiatus hernia [Not Recovered/Not Resolved]
  - Glossodynia [Recovered/Resolved]
  - Muscular weakness [Unknown]
  - Fatigue [Recovering/Resolving]
  - Pruritus [Recovering/Resolving]
  - Eating disorder [Unknown]

NARRATIVE: CASE EVENT DATE: 2018
